FAERS Safety Report 13504760 (Version 1)
Quarter: 2017Q2

REPORT INFORMATION
  Report Type: Report from Study
  Country: DE (occurrence: DE)
  Receive Date: 20170502
  Receipt Date: 20170502
  Transmission Date: 20170830
  Serious: Yes (Other)
  Sender: FDA-Public Use
  Company Number: DE-BIOGEN-2017BI00392563

PATIENT
  Age: 56 Year
  Sex: Female

DRUGS (1)
  1. TECFIDERA [Suspect]
     Active Substance: DIMETHYL FUMARATE
     Indication: PRODUCT USED FOR UNKNOWN INDICATION
     Dosage: MAINTENANCE DOSE
     Route: 048
     Dates: start: 20151216

REACTIONS (4)
  - Macular oedema [Not Recovered/Not Resolved]
  - Underdose [Not Recovered/Not Resolved]
  - Eye haemorrhage [Recovered/Resolved with Sequelae]
  - General symptom [Recovered/Resolved with Sequelae]

NARRATIVE: CASE EVENT DATE: 20151216
